FAERS Safety Report 8127865-4 (Version None)
Quarter: 2012Q1

REPORT INFORMATION
  Report Type: 
  Country: None (occurrence: None)
  Receive Date: 20120210
  Receipt Date: 20110922
  Transmission Date: 20120608
  Serious: Yes (Other)
  Sender: FDA-Public Use
  Company Number: US-GLAXOSMITHKLINE-A0946046A

PATIENT
  Sex: Female

DRUGS (5)
  1. OXYCODONE HCL [Suspect]
     Route: 065
  2. PAXIL [Suspect]
     Indication: PRODUCT USED FOR UNKNOWN INDICATION
     Dosage: 40MG IN THE MORNING
     Route: 065
  3. BUPRENORPHINE [Suspect]
     Route: 065
  4. HYDROCODONE [Suspect]
     Route: 065
  5. KLONOPIN [Suspect]
     Dosage: .5MG VARIABLE DOSE
     Route: 065

REACTIONS (1)
  - CONVULSION [None]
